FAERS Safety Report 14082896 (Version 1)
Quarter: 2017Q4

REPORT INFORMATION
  Report Type: Spontaneous
  Country: US (occurrence: US)
  Receive Date: 20171012
  Receipt Date: 20171012
  Transmission Date: 20180321
  Serious: No
  Sender: FDA-Public Use
  Company Number: US-MYLANLABS-2017M1054095

PATIENT
  Age: 77 Year
  Sex: Male
  Weight: 95 kg

DRUGS (1)
  1. AZELASTINE HYDROCHLORIDE NASAL SPRAY [Suspect]
     Active Substance: AZELASTINE HYDROCHLORIDE
     Indication: NASAL CONGESTION
     Dosage: UNK, BID, 1 OR 2 SPRAY PER DAY
     Dates: start: 20170807, end: 20170811

REACTIONS (2)
  - Nasal dryness [Unknown]
  - Epistaxis [Unknown]

NARRATIVE: CASE EVENT DATE: 20170810
